FAERS Safety Report 5430996-0 (Version None)
Quarter: 2007Q3

REPORT INFORMATION
  Report Type: 
  Country: None (occurrence: None)
  Receive Date: 20070830
  Receipt Date: 20070822
  Transmission Date: 20080115
  Serious: Yes (Other)
  Sender: FDA-Public Use
  Company Number: B0484171A

PATIENT
  Age: 25 Year
  Sex: Female

DRUGS (3)
  1. COMBIVIR [Suspect]
     Indication: ANTIVIRAL PROPHYLAXIS
     Route: 048
     Dates: start: 20070206
  2. LOPINAVIR AND RITONAVIR [Suspect]
     Indication: ANTIVIRAL PROPHYLAXIS
     Dosage: 2TABS TWICE PER DAY
     Route: 048
     Dates: start: 20070206
  3. COTRIM [Concomitant]
     Indication: PROPHYLAXIS
     Dosage: 480MG TWICE PER DAY
     Route: 048
     Dates: start: 20070223

REACTIONS (5)
  - ABDOMINAL PAIN [None]
  - ANOREXIA [None]
  - DIARRHOEA [None]
  - NAUSEA [None]
  - VOMITING [None]
